FAERS Safety Report 7036863-3 (Version None)
Quarter: 2010Q4

REPORT INFORMATION
  Report Type: 
  Country: None (occurrence: None)
  Receive Date: 20101011
  Receipt Date: 20100923
  Transmission Date: 20110411
  Serious: Yes (Other)
  Sender: FDA-Public Use
  Company Number: US-BAYER-201034887NA

PATIENT
  Age: 75 Year
  Sex: Female

DRUGS (1)
  1. NEXAVAR [Suspect]
     Indication: RENAL CELL CARCINOMA
     Route: 048
     Dates: start: 20100901, end: 20100901

REACTIONS (4)
  - BLOOD BILIRUBIN INCREASED [None]
  - FATIGUE [None]
  - HYPOPHOSPHATAEMIA [None]
  - MENTAL IMPAIRMENT [None]
